FAERS Safety Report 7679319-7 (Version None)
Quarter: 2011Q3

REPORT INFORMATION
  Report Type: 
  Country: None (occurrence: None)
  Receive Date: 20110809
  Receipt Date: 20110730
  Transmission Date: 20111222
  Serious: Yes (Life-Threatening, Hospitalization, Other)
  Sender: FDA-Public Use
  Company Number: CL-331-2011

PATIENT
  Age: 53 Year
  Sex: Male

DRUGS (2)
  1. CIPROFLOXACIN [Suspect]
     Indication: PROSTATITIS
     Dosage: 500 MG BD
  2. AMLODIPINE [Concomitant]

REACTIONS (5)
  - DEPRESSION [None]
  - HERNIA [None]
  - PROSTATITIS [None]
  - SUICIDE ATTEMPT [None]
  - DRUG INTERACTION [None]
